FAERS Safety Report 23246988 (Version 1)
Quarter: 2023Q4

REPORT INFORMATION
  Report Type: Spontaneous
  Country: US (occurrence: US)
  Receive Date: 20231130
  Receipt Date: 20231130
  Transmission Date: 20240110
  Serious: No
  Sender: FDA-Public Use
  Company Number: US-NOVOPROD-1012676

PATIENT
  Age: 60 Year
  Sex: Male

DRUGS (1)
  1. TRESIBA [Suspect]
     Active Substance: INSULIN DEGLUDEC
     Indication: Product used for unknown indication
     Dosage: 40 IU
     Route: 058

REACTIONS (4)
  - Dizziness [Unknown]
  - Confusional state [Unknown]
  - Vision blurred [Unknown]
  - Device failure [Unknown]

NARRATIVE: CASE EVENT DATE: 20221013
